FAERS Safety Report 8975687 (Version 1)
Quarter: 2012Q4

REPORT INFORMATION
  Report Type: 
  Country: US (occurrence: US)
  Receive Date: 20121219
  Receipt Date: 20121219
  Transmission Date: 20130627
  Serious: No
  Sender: FDA-Public Use
  Company Number: US-AMGEN-USASP2012071170

PATIENT
  Sex: Female

DRUGS (1)
  1. PROLIA [Suspect]
     Indication: OSTEOPOROSIS POSTMENOPAUSAL
     Dosage: UNK UNK, q6mo
     Dates: start: 2011

REACTIONS (6)
  - Dry throat [Not Recovered/Not Resolved]
  - Throat irritation [Not Recovered/Not Resolved]
  - Nasopharyngitis [Not Recovered/Not Resolved]
  - Feeling abnormal [Unknown]
  - Cough [Not Recovered/Not Resolved]
  - Asthenia [Not Recovered/Not Resolved]
